FAERS Safety Report 10239510 (Version 1)
Quarter: 2014Q2

REPORT INFORMATION
  Report Type: Spontaneous
  Country: US (occurrence: US)
  Receive Date: 20140616
  Receipt Date: 20140616
  Transmission Date: 20141212
  Serious: Yes (Other)
  Sender: FDA-Public Use
  Company Number: US-PFIZER INC-2014162614

PATIENT
  Age: 61 Year
  Sex: Male
  Weight: 96.15 kg

DRUGS (3)
  1. RELPAX [Suspect]
     Indication: CLUSTER HEADACHE
     Dosage: UNK
     Dates: end: 2014
  2. TRAMADOL [Concomitant]
     Indication: PAIN
     Dosage: 50 MG, EVERY FOUR TO SIX HOURS
  3. HYDROCODONE [Concomitant]
     Indication: PAIN
     Dosage: UNK, 3X/DAY

REACTIONS (2)
  - Limb deformity [Unknown]
  - Drug ineffective [Unknown]
